FAERS Safety Report 6359240-7 (Version None)
Quarter: 2009Q3

REPORT INFORMATION
  Report Type: 
  Country: None (occurrence: None)
  Receive Date: 20090917
  Receipt Date: 20090909
  Transmission Date: 20100115
  Serious: Yes (Other)
  Sender: FDA-Public Use
  Company Number: PHEH2009US10671

PATIENT
  Sex: Female

DRUGS (1)
  1. RIVASTIGMINE TARTRATE [Suspect]
     Dosage: 10 PATCHES
     Route: 062

REACTIONS (3)
  - CHOLINERGIC SYNDROME [None]
  - DRUG TOXICITY [None]
  - INCORRECT DOSE ADMINISTERED [None]
